FAERS Safety Report 24961299 (Version 1)
Quarter: 2025Q1

REPORT INFORMATION
  Report Type: Report from Study
  Country: US (occurrence: US)
  Receive Date: 20250212
  Receipt Date: 20250212
  Transmission Date: 20250409
  Serious: Yes (Hospitalization, Other)
  Sender: ABBVIE
  Company Number: US-ABBVIE-6128107

PATIENT
  Age: 34 Year
  Sex: Female

DRUGS (1)
  1. RINVOQ [Suspect]
     Active Substance: UPADACITINIB
     Indication: Product used for unknown indication
     Route: 048
     Dates: start: 20250102

REACTIONS (4)
  - Anal fissure haemorrhage [Unknown]
  - Crohn^s disease [Not Recovered/Not Resolved]
  - Product residue present [Unknown]
  - Rectal discharge [Unknown]

NARRATIVE: CASE EVENT DATE: 20250101
